FAERS Safety Report 5654327-6 (Version None)
Quarter: 2008Q1

REPORT INFORMATION
  Report Type: 
  Country: None (occurrence: None)
  Receive Date: 20080306
  Receipt Date: 20080227
  Transmission Date: 20080703
  Serious: Yes (Other)
  Sender: FDA-Public Use
  Company Number: JP-MERCK-0801USA05857

PATIENT
  Age: 77 Year
  Sex: Female
  Weight: 42 kg

DRUGS (13)
  1. HYZAAR [Suspect]
     Indication: HYPERTENSION
     Route: 048
     Dates: start: 20071119, end: 20080129
  2. DEPAS [Concomitant]
     Indication: DEPRESSION
     Route: 048
     Dates: start: 20061201
  3. DEPAS [Concomitant]
     Route: 048
     Dates: start: 20070101
  4. DEPAS [Concomitant]
     Indication: INSOMNIA
     Route: 048
     Dates: start: 20061201
  5. DEPAS [Concomitant]
     Route: 048
     Dates: start: 20070101
  6. SULPIRIDE [Concomitant]
     Indication: DEPRESSION
     Route: 048
     Dates: start: 20061201
  7. SULPIRIDE [Concomitant]
     Indication: INSOMNIA
     Route: 048
     Dates: start: 20061201
  8. ALPRAZOLAM [Concomitant]
     Indication: DEPRESSION
     Route: 048
     Dates: start: 20061201
  9. ALPRAZOLAM [Concomitant]
     Indication: INSOMNIA
     Route: 048
     Dates: start: 20061201
  10. ALOSENN [Concomitant]
     Indication: CONSTIPATION
     Route: 048
     Dates: start: 20061201
  11. CHINESE LICORICE [Concomitant]
     Route: 048
     Dates: start: 20070101
  12. DIAZEPAM [Concomitant]
     Indication: INSOMNIA
     Route: 048
     Dates: start: 20080122
  13. LENDORMIN [Concomitant]
     Indication: INSOMNIA
     Route: 048
     Dates: start: 20000101

REACTIONS (4)
  - DYSKINESIA [None]
  - HYPOKALAEMIA [None]
  - MUSCLE SPASMS [None]
  - TREMOR [None]
